FAERS Safety Report 16256058 (Version 2)
Quarter: 2019Q2

REPORT INFORMATION
  Report Type: Spontaneous
  Country: US (occurrence: US)
  Receive Date: 20190430
  Receipt Date: 20190528
  Transmission Date: 20190711
  Serious: No
  Sender: FDA-Public Use
  Company Number: US-PFIZER INC-2019183357

PATIENT
  Age: 74 Year
  Sex: Male
  Weight: 102 kg

DRUGS (20)
  1. LEVEMIR [Concomitant]
     Active Substance: INSULIN DETEMIR
     Dosage: UNK, 1X/DAY (INJECT 60 UNITS SUBCUTANEOUSLY AT BEDTIME)
     Route: 058
  2. ONE TOUCH [Concomitant]
     Active Substance: DEXTROSE
     Dosage: UNK, 4X/DAY (USE TO TEST BEFORE MEALS AND ONE TO TWO HOURS AFTER MEALS AS DIRECTED; FOUR TIMES)
  3. PNEUMOCOCCAL POLYSACCHARIDE VACCINE [Concomitant]
     Active Substance: PNEUMOCOCCAL VACCINE POLYVALENT
     Indication: IMMUNISATION
     Route: 030
     Dates: start: 20120813
  4. LYRICA [Suspect]
     Active Substance: PREGABALIN
     Indication: DIABETIC NEUROPATHY
     Dosage: 75 MG, 2X/DAY
     Route: 048
  5. LYRICA [Suspect]
     Active Substance: PREGABALIN
     Indication: NEURALGIA
  6. INFLUENZA [Concomitant]
     Active Substance: INFLUENZA VIRUS VACCINE
     Indication: IMMUNISATION
     Route: 030
     Dates: start: 20180904
  7. PNEUMOCOCCAL CONJUGATE VACCINE [Concomitant]
     Active Substance: PNEUMOCOCCAL VACCINE POLYVALENT
     Dates: start: 20160101
  8. FERROUS SULFATE. [Concomitant]
     Active Substance: FERROUS SULFATE
     Dosage: 325 MG, DAILY (65MG IRON)(TAKE 1 TABLET(S) EVERY DAY BY ORAL ROUTE)
     Route: 048
  9. VITAMIN D3 [Concomitant]
     Active Substance: CHOLECALCIFEROL
     Dosage: UNK, DAILY (TAKE 1 TABLET(S) EVERY DAY BY ORAL ROUTE)
     Route: 048
  10. NOVOLOG [Concomitant]
     Active Substance: INSULIN ASPART
     Dosage: UNK, 3X/DAY (INJECT 10 TO 12 UNITS SUBCUTANEOUSLY THREE TIMES DAILY PER SLIDING SCALE)
     Route: 058
  11. SILDENAFIL. [Concomitant]
     Active Substance: SILDENAFIL
     Indication: HYPERTENSION
     Dosage: UNK, (TAKE 3 TO 5 TABLETS ONE HOUR PRIOR TO SEXUAL ACTIVITY; MAXIMUM 5 TABLETS PER 24 HOURS)
     Route: 048
  12. CALCITRIOL. [Concomitant]
     Active Substance: CALCITRIOL
     Dosage: 0.5 UG, DAILY (TAKE 1 CAPSULE(S) EVERY DAY BY ORAL ROUTE FOR 30 DAYS)
     Route: 048
  13. TAMSULOSIN [Concomitant]
     Active Substance: TAMSULOSIN
     Indication: BENIGN PROSTATIC HYPERPLASIA
     Dosage: 0.4 MG, DAILY (TAKE 1 CAPSULE(S) EVERY DAY BY ORAL ROUTE)
     Route: 048
  14. TDAP [Concomitant]
     Active Substance: TETANUS TOXOID, REDUCED DIPHTHERIA TOXOID AND ACELLULAR PERTUSSIS VACCINE ADSORBED, TDAP
     Indication: IMMUNISATION
     Dates: start: 20120101
  15. SIMVASTATIN. [Concomitant]
     Active Substance: SIMVASTATIN
     Indication: HYPERLIPIDAEMIA
     Dosage: 40 MG, DAILY (TAKE 1 TABLET(S) EVERY DAY BY ORAL ROUTE)
     Route: 048
  16. XARELTO [Concomitant]
     Active Substance: RIVAROXABAN
     Indication: ATRIAL FIBRILLATION
     Dosage: 15 MG, DAILY (TAKE 1 TABLET(S) EVERY DAY BY ORAL ROUTE)
     Route: 048
  17. INFLUENZA [Concomitant]
     Active Substance: INFLUENZA VIRUS VACCINE
     Route: 030
     Dates: start: 20170918
  18. DIGOXIN. [Concomitant]
     Active Substance: DIGOXIN
     Indication: ATRIAL FIBRILLATION
     Dosage: 125 UG, DAILY (TAKE 1 TABLET(S) EVERY DAY BY ORAL ROUTE)
     Route: 048
  19. INFLUENZA [Concomitant]
     Active Substance: INFLUENZA VIRUS VACCINE
     Dates: start: 20160101
  20. PNEUMOCOCCAL CONJUGATE VACCINE [Concomitant]
     Active Substance: PNEUMOCOCCAL VACCINE POLYVALENT
     Indication: IMMUNISATION
     Route: 030
     Dates: start: 20171024

REACTIONS (3)
  - Pain [Unknown]
  - Off label use [Unknown]
  - Product use issue [Unknown]
